FAERS Safety Report 16571728 (Version 2)
Quarter: 2019Q3

REPORT INFORMATION
  Report Type: Spontaneous
  Country: US (occurrence: US)
  Receive Date: 20190715
  Receipt Date: 20190924
  Transmission Date: 20191004
  Serious: No
  Sender: FDA-Public Use
  Company Number: US-PFIZER INC-2019294811

PATIENT
  Age: 73 Year

DRUGS (1)
  1. LYRICA [Suspect]
     Active Substance: PREGABALIN
     Dosage: 75 MG, 2X/DAY

REACTIONS (4)
  - Peripheral swelling [Unknown]
  - Gait disturbance [Unknown]
  - Nerve compression [Unknown]
  - Pain in extremity [Unknown]
